FAERS Safety Report 9469831 (Version 1)
Quarter: 2013Q3

REPORT INFORMATION
  Report Type: Report from Study
  Country: AU (occurrence: AU)
  Receive Date: 20130822
  Receipt Date: 20130822
  Transmission Date: 20140515
  Serious: Yes (Other)
  Sender: FDA-Public Use
  Company Number: AU-SANOFI-AVENTIS-2013SA083752

PATIENT
  Age: 12 Year
  Sex: Male

DRUGS (2)
  1. DDAVP [Suspect]
     Indication: DIABETES INSIPIDUS
     Route: 058
  2. DDAVP [Suspect]
     Indication: DIABETES INSIPIDUS
     Route: 048
     Dates: start: 200208

REACTIONS (3)
  - Hypernatraemia [Unknown]
  - Hyponatraemia [Unknown]
  - Convulsion [Unknown]
